FAERS Safety Report 25402036 (Version 2)
Quarter: 2025Q2

REPORT INFORMATION
  Report Type: Report from Study
  Country: PR (occurrence: PR)
  Receive Date: 20250605
  Receipt Date: 20250610
  Transmission Date: 20250716
  Serious: No
  Sender: BRISTOL-MYERS SQUIBB COMPANY
  Company Number: PR-BRISTOL-MYERS SQUIBB COMPANY-2025-079933

PATIENT
  Age: 45 Year
  Sex: Female

DRUGS (1)
  1. ZEPOSIA [Suspect]
     Active Substance: OZANIMOD HYDROCHLORIDE
     Indication: Multiple sclerosis
     Route: 048
     Dates: start: 202505, end: 20250522

REACTIONS (3)
  - Adverse drug reaction [Unknown]
  - Musculoskeletal stiffness [Unknown]
  - Neck pain [Unknown]

NARRATIVE: CASE EVENT DATE: 20250523
